FAERS Safety Report 23094576 (Version 3)
Quarter: 2023Q4

REPORT INFORMATION
  Report Type: Spontaneous
  Country: JP (occurrence: JP)
  Receive Date: 20231023
  Receipt Date: 20231219
  Transmission Date: 20240109
  Serious: Yes (Hospitalization)
  Sender: FDA-Public Use
  Company Number: JP-AMGEN-JPNSP2023186465

PATIENT
  Age: 79 Year
  Sex: Male

DRUGS (5)
  1. EVENITY [Suspect]
     Active Substance: ROMOSOZUMAB-AQQG
     Indication: Osteoporosis
     Dosage: 210 MILLIGRAM, QMO
     Route: 058
     Dates: start: 20230808, end: 20230905
  2. PREDONINE [Concomitant]
     Active Substance: PREDNISOLONE
     Indication: Analgesic therapy
     Dosage: 25 MILLIGRAM, BID
     Dates: start: 20230626, end: 20230905
  3. PREGABALIN [Concomitant]
     Active Substance: PREGABALIN
     Indication: Pain
     Dosage: 25 MILLIGRAM, BID
     Dates: start: 20230626, end: 20230905
  4. BISOPROLOL FUMARATE [Concomitant]
     Active Substance: BISOPROLOL FUMARATE
     Indication: Cardiac failure
     Dosage: 0.625 MILLIGRAM, QD
  5. ENALAPRIL [Concomitant]
     Active Substance: ENALAPRIL
     Indication: Cardiac failure
     Dosage: 2.5 MILLIGRAM, QD

REACTIONS (1)
  - Pathological fracture [Unknown]

NARRATIVE: CASE EVENT DATE: 20230921
